FAERS Safety Report 5968383-9 (Version None)
Quarter: 2008Q4

REPORT INFORMATION
  Report Type: 
  Country: None (occurrence: None)
  Receive Date: 20081121
  Receipt Date: 20081121
  Transmission Date: 20090506
  Serious: Yes (Disabling)
  Sender: FDA-Public Use
  Company Number: None

PATIENT
  Age: 58 Year
  Sex: Male

DRUGS (1)
  1. LEVAQUIN [Suspect]
     Indication: ANTIBIOTIC PROPHYLAXIS
     Dosage: 500MG  NOW IV DRIP
     Route: 041
     Dates: start: 20081119, end: 20081119

REACTIONS (3)
  - BURNING SENSATION [None]
  - ERYTHEMA [None]
  - PAIN [None]
